FAERS Safety Report 17830386 (Version 2)
Quarter: 2020Q4

REPORT INFORMATION
  Report Type: Spontaneous
  Country: JP (occurrence: JP)
  Receive Date: 20200527
  Receipt Date: 20201005
  Transmission Date: 20210113
  Serious: Yes (Other)
  Sender: FDA-Public Use
  Company Number: JP-BAYER-2020-095992

PATIENT
  Age: 71 Year
  Sex: Male
  Weight: 59.8 kg

DRUGS (7)
  1. ESOMEPRAZOLE. [Concomitant]
     Active Substance: ESOMEPRAZOLE MAGNESIUM
     Dosage: 20MG/DAY
     Route: 048
     Dates: start: 20180404
  2. BARACLUDE [Concomitant]
     Active Substance: ENTECAVIR
     Dosage: 0.5MG/DAY
     Route: 048
     Dates: start: 201610
  3. CAMOSTAT MESILATE [Concomitant]
     Active Substance: CAMOSTAT MESYLATE
     Dosage: 600MG/DAY
     Route: 048
     Dates: start: 20170831
  4. MAHADY [Concomitant]
     Indication: DRUG TOXICITY PROPHYLAXIS
     Dosage: APPROPRIATE AMOUNT
     Route: 061
     Dates: start: 20191011
  5. HIRUDOID [Concomitant]
     Active Substance: GLYCOSAMINOGLYCANS
     Indication: DRUG TOXICITY PROPHYLAXIS
     Dosage: APPROPRIATE AMOUNT
     Route: 061
     Dates: start: 20191011
  6. STIVARGA [Suspect]
     Active Substance: REGORAFENIB
     Indication: COLORECTAL CANCER RECURRENT
     Dosage: 120MG/DAY , 3 CONSECUTIVE WEEKS ADMINISTRATION 1 WEEK OFF
     Route: 048
     Dates: start: 20191108, end: 20200515
  7. STIVARGA [Suspect]
     Active Substance: REGORAFENIB
     Indication: COLORECTAL CANCER RECURRENT
     Dosage: 80MG/DAY , 3 CONSECUTIVE WEEKS ADMINISTRATION 1 WEEK OFF
     Route: 048
     Dates: start: 20191011, end: 20191107

REACTIONS (4)
  - Keratoacanthoma [Not Recovered/Not Resolved]
  - Dermatitis [None]
  - Squamous cell carcinoma of skin [Not Recovered/Not Resolved]
  - Stomatitis [None]

NARRATIVE: CASE EVENT DATE: 20200501
